FAERS Safety Report 8504285-1 (Version None)
Quarter: 2012Q3

REPORT INFORMATION
  Report Type: 
  Country: None (occurrence: None)
  Receive Date: 20120711
  Receipt Date: 20120702
  Transmission Date: 20120928
  Serious: Yes (Death)
  Sender: FDA-Public Use
  Company Number: FR-FRI-1000036935

PATIENT
  Age: 52 Year
  Sex: Male

DRUGS (2)
  1. ATORVASTATIN [Concomitant]
     Indication: HYPERCHOLESTEROLAEMIA
     Dosage: 10 MG
  2. ESCITALOPRAM [Suspect]
     Indication: STRESS AT WORK
     Dosage: 5 MG
     Route: 048
     Dates: start: 20120621

REACTIONS (1)
  - MYOCARDIAL INFARCTION [None]
